FAERS Safety Report 18235006 (Version 1)
Quarter: 2020Q3

REPORT INFORMATION
  Report Type: Spontaneous
  Country: DE (occurrence: DE)
  Receive Date: 20200904
  Receipt Date: 20200904
  Transmission Date: 20201103
  Serious: Yes (Hospitalization)
  Sender: FDA-Public Use
  Company Number: DE-PURDUE-USA-2020-0164614

PATIENT
  Age: 75 Year
  Sex: Female

DRUGS (17)
  1. DULOXETINE. [Suspect]
     Active Substance: DULOXETINE
     Indication: PRODUCT USED FOR UNKNOWN INDICATION
     Dosage: 30 MG, DAILY (30 MG, 1?0?0?0, KAPSELN)
     Route: 048
  2. TORASEMID [Suspect]
     Active Substance: TORSEMIDE
     Indication: PRODUCT USED FOR UNKNOWN INDICATION
     Dosage: 50 MG, BID (50 MG, 1?1?0?0, TABLETTEN)
     Route: 048
  3. POTASSIUM CITRATE. [Concomitant]
     Active Substance: POTASSIUM CITRATE
     Dosage: 2157.3 MG, Q8H (2157.3 MG, 1?1?1?0, BEUTEL)
     Route: 048
  4. APIXABAN [Concomitant]
     Active Substance: APIXABAN
     Dosage: 2.5 MG, Q12H (2.5 MG, 1?0?1?0, TABLETTEN)
     Route: 048
  5. PANTOPRAZOL [Concomitant]
     Active Substance: PANTOPRAZOLE SODIUM
     Dosage: 20 MG, DAILY (20 MG, 1?0?0?0, TABLETTEN)
     Route: 048
  6. HYDROMORPHONE HCL (SIMILAR TO 19?892) [Suspect]
     Active Substance: HYDROMORPHONE HYDROCHLORIDE
     Dosage: 2.6 MG, UNK (2.6 MG / TAG, BEDARF, KAPSELN)
     Route: 048
  7. MAGNESIUM OXIDE. [Concomitant]
     Active Substance: MAGNESIUM OXIDE
     Dosage: 3 DF [DOSAGE FORM TOTAL], DAILY (250 MG, 2?0?1?0, KAPSELN)
     Route: 048
  8. SALBUTAMOL [Concomitant]
     Active Substance: ALBUTEROL
     Dosage: 0.1 MG, UNK (0.1 MG / TAG, BEDARF, DOSIERAEROSOL)
     Route: 055
  9. ROPINIROL [Concomitant]
     Active Substance: ROPINIROLE
     Dosage: 0.25 MG, UNK (0.25 MG, BEDARF, TABLETTEN)
     Route: 048
  10. BENSERAZIDE HYDROCHLORIDE W/LEVODOPA [Concomitant]
     Active Substance: BENSERAZIDE HYDROCHLORIDE\LEVODOPA
     Dosage: 1 DF [DOSAGE FORM TOTAL], DAILY (25|100 MG, 0?0?0?1, KAPSELN)
     Route: 048
  11. ALFACALCIDOL [Concomitant]
     Active Substance: ALFACALCIDOL
     Dosage: 0.25 MCG, DAILY (0.25 G, 0?0?1?0, KAPSELN)
     Route: 048
  12. ROPINIROL [Concomitant]
     Active Substance: ROPINIROLE
     Dosage: 0.25 MG, Q12H (0.25 MG, 1?0?1?0, TABLETTEN)
     Route: 048
  13. LEVOTHYROXINE SODIUM. [Concomitant]
     Active Substance: LEVOTHYROXINE SODIUM
     Dosage: 0.1 MG, DAILY (0.1 MG, 1?0?0?0, TABLETTEN)
     Route: 048
  14. CLEMASTIN [Suspect]
     Active Substance: CLEMASTINE
     Indication: PRODUCT USED FOR UNKNOWN INDICATION
     Dosage: 1 MG, DAILY (1 MG, 0?0?0?1, TABLETTEN)
     Route: 048
  15. DONEPEZIL. [Concomitant]
     Active Substance: DONEPEZIL
     Dosage: 10 MG, DAILY (10 MG, 0?0?1?0, TABLETTEN)
     Route: 048
  16. HYDROMORPHONE HCL (SIMILAR TO 19?892) [Suspect]
     Active Substance: HYDROMORPHONE HYDROCHLORIDE
     Indication: PRODUCT USED FOR UNKNOWN INDICATION
     Dosage: 8 MG, Q8H (8 MG, 1?1?1?0, RETARD?KAPSELN)
     Route: 048
  17. FOLSAEURE [Concomitant]
     Active Substance: FOLIC ACID
     Dosage: 5 MG, DAILY (5 MG, 1?0?0?0, TABLETTEN)
     Route: 048

REACTIONS (5)
  - Fall [Unknown]
  - Product monitoring error [Unknown]
  - General physical health deterioration [Unknown]
  - Dizziness [Unknown]
  - Decreased appetite [Unknown]
